FAERS Safety Report 17351310 (Version 3)
Quarter: 2020Q3

REPORT INFORMATION
  Report Type: Report from Study
  Country: GR (occurrence: GR)
  Receive Date: 20200130
  Receipt Date: 20200908
  Transmission Date: 20201102
  Serious: Yes (Hospitalization, Other)
  Sender: FDA-Public Use
  Company Number: GR-ROCHE-2535171

PATIENT
  Age: 78 Year
  Sex: Male
  Weight: 80 kg

DRUGS (5)
  1. SINTROM [Concomitant]
     Active Substance: ACENOCOUMAROL
     Dates: end: 20191220
  2. VEMURAFENIB. [Suspect]
     Active Substance: VEMURAFENIB
     Indication: MALIGNANT MELANOMA
     Dosage: ON DAY 1?21 OF A 28?DAY?CYCLE?DATE OF LAST DOSE: 19/DEC/2019
     Route: 048
     Dates: start: 20191205, end: 20191220
  3. COBIMETINIB. [Suspect]
     Active Substance: COBIMETINIB
     Indication: MALIGNANT MELANOMA
     Dosage: ON DAY 1?21 OF A 28?DAY?CYCLE?DATE OF LAST DOSE: 19/DEC/2019
     Route: 048
     Dates: start: 20191205, end: 20191219
  4. CARVEPEN [Concomitant]
     Active Substance: CARVEDILOL
     Dates: end: 20191220
  5. ANTORCIN [Concomitant]
     Active Substance: ATORVASTATIN CALCIUM
     Dates: end: 20191220

REACTIONS (2)
  - Atrial fibrillation [Unknown]
  - Ejection fraction decreased [Not Recovered/Not Resolved]

NARRATIVE: CASE EVENT DATE: 20191210
